FAERS Safety Report 10947311 (Version 1)
Quarter: 2015Q1

REPORT INFORMATION
  Report Type: Spontaneous
  Country: US (occurrence: None)
  Receive Date: 20150218
  Receipt Date: 20150218
  Transmission Date: 20150721
  Serious: No
  Sender: FDA-Public Use
  Company Number: 2015FE00055

PATIENT
  Age: 61 Year
  Sex: Female
  Weight: 50.8 kg

DRUGS (2)
  1. PREPOPIK [Suspect]
     Active Substance: ANHYDROUS CITRIC ACID\MAGNESIUM OXIDE\SODIUM PICOSULFATE
     Indication: BOWEL PREPARATION
     Dates: start: 20141221, end: 20141222
  2. PAXIL /00500401/ (PIROXICAM) [Concomitant]

REACTIONS (8)
  - Feeling abnormal [None]
  - Syncope [None]
  - Feeling cold [None]
  - Dyspnoea [None]
  - Pallor [None]
  - Burning sensation [None]
  - Fear [None]
  - Blood pressure decreased [None]

NARRATIVE: CASE EVENT DATE: 20141221
